FAERS Safety Report 19938391 (Version 2)
Quarter: 2021Q4

REPORT INFORMATION
  Report Type: Spontaneous
  Country: CN (occurrence: CN)
  Receive Date: 20211011
  Receipt Date: 20211020
  Transmission Date: 20220304
  Serious: Yes (Other)
  Sender: FDA-Public Use
  Company Number: ALC2021CN005493

PATIENT
  Age: 61 Year
  Sex: Female

DRUGS (1)
  1. FLUORESCEIN SODIUM [Suspect]
     Active Substance: FLUORESCEIN SODIUM
     Indication: Angiogram retina
     Dosage: UNK
     Route: 042

REACTIONS (2)
  - Anaphylactic shock [Recovered/Resolved]
  - Atrial fibrillation [Recovered/Resolved]
